FAERS Safety Report 5925164-X (Version None)
Quarter: 2008Q4

REPORT INFORMATION
  Report Type: 
  Country: None (occurrence: None)
  Receive Date: 20081020
  Receipt Date: 20081020
  Transmission Date: 20090506
  Serious: Yes (Other)
  Sender: FDA-Public Use
  Company Number: None

PATIENT
  Age: 58 Year
  Sex: Male
  Weight: 106.5953 kg

DRUGS (2)
  1. ANTARA (MICRONIZED) [Suspect]
     Indication: LOW DENSITY LIPOPROTEIN INCREASED
     Dosage: ONE DAILY PO
     Route: 048
     Dates: start: 20081015, end: 20081017
  2. VYTORIN [Suspect]
     Indication: LOW DENSITY LIPOPROTEIN INCREASED
     Dosage: ONE DAILY PO
     Route: 048
     Dates: start: 20080814, end: 20080914

REACTIONS (2)
  - FATIGUE [None]
  - MUSCULAR WEAKNESS [None]
